FAERS Safety Report 26149737 (Version 1)
Quarter: 2025Q4

REPORT INFORMATION
  Report Type: Spontaneous
  Country: JP (occurrence: JP)
  Receive Date: 20251212
  Receipt Date: 20251212
  Transmission Date: 20260117
  Serious: Yes (Other)
  Sender: ORION PHARMA
  Company Number: JP-HEXAL-SDZ2024JP036964AA

PATIENT
  Age: 80 Year
  Sex: Male

DRUGS (1)
  1. ENTACAPONE [Suspect]
     Active Substance: ENTACAPONE
     Indication: Product used for unknown indication

REACTIONS (1)
  - Hallucination [Unknown]
